FAERS Safety Report 7885392 (Version 2)
Quarter: 2013Q2

REPORT INFORMATION
  Report Type: Report from Study
  Country: MX (occurrence: MX)
  Receive Date: 20110405
  Receipt Date: 20130531
  Transmission Date: 20140414
  Serious: Yes (Hospitalization)
  Sender: FDA-Public Use
  Company Number: PHHY2011MX24561

PATIENT
  Age: 67 Year
  Sex: Female

DRUGS (2)
  1. EXFORGE [Suspect]
     Indication: HYPERTENSION
     Dosage: 1 TABLET (160MG VALS /5MG AMLO), QD
     Route: 048
     Dates: start: 20100101, end: 20110306
  2. EXFORGE [Suspect]
     Dosage: 1 TABLET (160MG VALS/ 5 MG OF AMLO), QD
     Route: 048
     Dates: start: 20110320

REACTIONS (2)
  - Inguinal hernia, obstructive [Recovered/Resolved]
  - Abdominal pain [Recovered/Resolved]
